FAERS Safety Report 8987228 (Version 1)
Quarter: 2012Q4

REPORT INFORMATION
  Report Type: 
  Country: HU (occurrence: HU)
  Receive Date: 20121226
  Receipt Date: 20121226
  Transmission Date: 20130627
  Serious: Yes (Other)
  Sender: FDA-Public Use
  Company Number: HU-WATSON-2012-22594

PATIENT
  Age: 20 Year
  Sex: Male

DRUGS (8)
  1. CARBOPLATIN (WATSON LABORATORIES) [Suspect]
     Indication: PHAEOCHROMOCYTOMA MALIGNANT
     Dosage: UNK, unknown
     Route: 065
  2. VINCRISTINE [Suspect]
     Indication: PHAEOCHROMOCYTOMA MALIGNANT
     Dosage: UNK, unknown
     Route: 065
  3. CYCLOPHOSPHAMIDE [Suspect]
     Indication: PHAEOCHROMOCYTOMA MALIGNANT
     Dosage: UNK, unknown
     Route: 065
  4. BUSULFAN [Suspect]
     Indication: AUTOLOGOUS BONE MARROW TRANSPLANTATION THERAPY
     Dosage: UNK, unknown
     Route: 065
  5. MELPHALAN [Suspect]
     Indication: AUTOLOGOUS BONE MARROW TRANSPLANTATION THERAPY
     Dosage: UNK, unknown
     Route: 065
  6. CORTEF                            /00028601/ [Suspect]
     Indication: ADRENAL INSUFFICIENCY
     Dosage: 10+ 5 mg
     Route: 065
  7. ETOPOSIDE [Suspect]
     Indication: PHAEOCHROMOCYTOMA MALIGNANT
     Dosage: UNK, unknown
     Route: 065
  8. CISPLATIN [Suspect]
     Indication: PHAEOCHROMOCYTOMA MALIGNANT
     Dosage: UNK, unknown
     Route: 065

REACTIONS (1)
  - Urethral stenosis [Unknown]
